FAERS Safety Report 5299521-1 (Version None)
Quarter: 2007Q2

REPORT INFORMATION
  Report Type: 
  Country: None (occurrence: None)
  Receive Date: 20070417
  Receipt Date: 20070404
  Transmission Date: 20071010
  Serious: Yes (Other)
  Sender: FDA-Public Use
  Company Number: US-AMGEN-US132446

PATIENT
  Sex: Female
  Weight: 81.7 kg

DRUGS (2)
  1. ENBREL [Suspect]
     Indication: PSORIATIC ARTHROPATHY
     Route: 058
     Dates: start: 20040903
  2. ENBREL [Suspect]
     Indication: PSORIASIS

REACTIONS (4)
  - ASTHMA [None]
  - PYREXIA [None]
  - SARCOIDOSIS [None]
  - UPPER RESPIRATORY TRACT INFECTION [None]
